FAERS Safety Report 15392821 (Version 4)
Quarter: 2019Q1

REPORT INFORMATION
  Report Type: Spontaneous
  Country: US (occurrence: US)
  Receive Date: 20180917
  Receipt Date: 20190208
  Transmission Date: 20190417
  Serious: Yes (Other)
  Sender: FDA-Public Use
  Company Number: US-NOVOPROD-620957

PATIENT
  Age: 76 Year
  Sex: Female
  Weight: 83.45 kg

DRUGS (1)
  1. VICTOZA [Suspect]
     Active Substance: LIRAGLUTIDE
     Indication: DIABETES MELLITUS INADEQUATE CONTROL
     Dosage: 1.8 MG, QD
     Route: 058
     Dates: start: 20150320

REACTIONS (1)
  - Open angle glaucoma [Recovering/Resolving]

NARRATIVE: CASE EVENT DATE: 2016
